FAERS Safety Report 12040158 (Version 1)
Quarter: 2016Q1

REPORT INFORMATION
  Report Type: Spontaneous
  Country: US (occurrence: US)
  Receive Date: 20160208
  Receipt Date: 20160208
  Transmission Date: 20160526
  Serious: Yes (Hospitalization)
  Sender: FDA-Public Use
  Company Number: US-AUROBINDO-AUR-APL-2016-01009

PATIENT
  Age: 67 Year
  Sex: Male

DRUGS (3)
  1. TRIAMCINOLONE [Interacting]
     Active Substance: TRIAMCINOLONE
     Indication: ANTIRETROVIRAL THERAPY
     Route: 014
  2. RITONAVIR. [Interacting]
     Active Substance: RITONAVIR
     Indication: ANTIRETROVIRAL THERAPY
     Dosage: UNK
     Route: 065
     Dates: start: 199707
  3. METHYLPREDNISOLONE SODIUM SUCCINATE FOR INJECTION [Suspect]
     Active Substance: METHYLPREDNISOLONE SODIUM SUCCINATE
     Indication: PRODUCT USED FOR UNKNOWN INDICATION
     Route: 065

REACTIONS (4)
  - Asthenia [Recovered/Resolved]
  - Adrenal insufficiency [Recovered/Resolved]
  - Myopathy [Recovered/Resolved]
  - Drug interaction [Recovered/Resolved]

NARRATIVE: CASE EVENT DATE: 20140922
